FAERS Safety Report 7684122-8 (Version None)
Quarter: 2011Q3

REPORT INFORMATION
  Report Type: 
  Country: None (occurrence: None)
  Receive Date: 20110815
  Receipt Date: 20110802
  Transmission Date: 20111222
  Serious: Yes (Other)
  Sender: FDA-Public Use
  Company Number: US-BAYER-201030085NA

PATIENT
  Age: 83 Year
  Sex: Male
  Weight: 88.435 kg

DRUGS (32)
  1. ISOVUE-370 [Concomitant]
     Indication: CATHETERISATION CARDIAC
     Dosage: 40 CC
     Dates: start: 20060807
  2. FRESH FROZEN PLASMA [Concomitant]
     Dosage: 2 U, UNK
     Route: 042
     Dates: start: 20060808
  3. AGGRASTAT [Concomitant]
     Dosage: UNK
     Dates: start: 20060807
  4. NITROGLYCERIN [Concomitant]
  5. LOTREL [Concomitant]
     Dosage: 10
     Route: 048
  6. LISINOPRIL [Concomitant]
     Indication: HYPERTENSION
  7. PHENYLEPHRINE HCL [Concomitant]
     Dosage: UNK
     Route: 042
     Dates: start: 20060808
  8. PLAVIX [Concomitant]
     Dosage: UNK
     Dates: start: 20060807
  9. AMICAR [Concomitant]
     Dosage: 5 G, UNK
     Route: 042
     Dates: start: 20060808
  10. HEPARIN [Concomitant]
     Dosage: 10000 U, UNK
     Route: 042
     Dates: start: 20060808
  11. RED BLOOD CELLS [Concomitant]
     Dosage: 4 U, UNK
     Route: 042
     Dates: start: 20060808
  12. LEVOTHYROXINE SODIUM [Concomitant]
  13. LIDOCAINE [Concomitant]
     Dosage: UNK
     Dates: start: 20060808
  14. BUMEX [Concomitant]
     Dosage: UNK
     Dates: start: 20060808, end: 20060815
  15. LASIX [Concomitant]
     Dosage: 40 MG, UNK
     Route: 042
     Dates: start: 20060808
  16. AMICAR [Concomitant]
     Dosage: 50 MG, UNK
     Route: 042
     Dates: start: 20060808
  17. LOTREL [Concomitant]
     Dosage: 20
     Route: 048
  18. PINDOLOL [Concomitant]
     Dosage: 10 MG, UNK
     Route: 048
  19. VERSED [Concomitant]
     Dosage: 8 MG, UNK
     Route: 042
     Dates: start: 20060808
  20. PROTAMINE [Concomitant]
     Dosage: 250 MG, UNK
     Route: 042
     Dates: start: 20060808
  21. EPINEPHRINE [Concomitant]
  22. SIMVASTATIN [Concomitant]
     Indication: BLOOD CHOLESTEROL INCREASED
  23. FENTANYL [Concomitant]
     Dosage: 50 MG/CC, TOTAL 10 CC
     Route: 042
     Dates: start: 20060808
  24. FENTANYL [Concomitant]
  25. MILRINONE [Concomitant]
     Dosage: 4.5 MG, OVER 10 MINUTES
     Route: 042
     Dates: start: 20060608
  26. ALBUMIN (HUMAN) [Concomitant]
     Dosage: 50 G, UNK
     Route: 042
     Dates: start: 20060808
  27. PLATELETS [Concomitant]
     Dosage: 20 U, UNK
     Route: 042
     Dates: start: 20060808
  28. DOPAMINE HCL [Concomitant]
     Dosage: 5 MG, UNK
  29. SYNTHROID [Concomitant]
     Dosage: 25 MCG
     Route: 048
  30. TRASYLOL [Suspect]
     Indication: CORONARY ARTERY BYPASS
     Route: 042
     Dates: start: 20060808, end: 20060808
  31. MANNITOL [Concomitant]
     Dosage: 12.5 MG, UNK
     Route: 042
     Dates: start: 20060808
  32. NORVASC [Concomitant]
     Dosage: 5 MG, UNK
     Route: 048

REACTIONS (14)
  - RENAL FAILURE [None]
  - DEPRESSION [None]
  - PAIN [None]
  - STRESS [None]
  - RENAL INJURY [None]
  - DISABILITY [None]
  - MULTI-ORGAN FAILURE [None]
  - FEAR [None]
  - EMOTIONAL DISTRESS [None]
  - EMOTIONAL DISORDER [None]
  - RENAL IMPAIRMENT [None]
  - INJURY [None]
  - ANHEDONIA [None]
  - ANXIETY [None]
